FAERS Safety Report 5151868-5 (Version None)
Quarter: 2006Q4

REPORT INFORMATION
  Report Type: 
  Country: None (occurrence: None)
  Receive Date: 20061109
  Receipt Date: 20061030
  Transmission Date: 20070319
  Serious: Yes (Hospitalization, Other)
  Sender: FDA-Public Use
  Company Number: 2006135294

PATIENT
  Age: 59 Year
  Sex: Male

DRUGS (4)
  1. LIPITOR [Suspect]
     Indication: HYPERLIPIDAEMIA
     Dosage: 10 MG (1 IN 1 D), ORAL
     Route: 048
     Dates: start: 20060401, end: 20061024
  2. TICLOPIDINE HCL [Suspect]
     Dosage: 100 MG (1 IN 1 D),ORAL
     Route: 048
     Dates: start: 20060315, end: 20061027
  3. OLMETEC               (OLMESARTAN) [Concomitant]
  4. CALBLOCK  (AZELNIDIPINE) [Concomitant]

REACTIONS (2)
  - ALVEOLITIS ALLERGIC [None]
  - CRYPTOCOCCOSIS [None]
